APPROVED DRUG PRODUCT: SYNALAR-HP
Active Ingredient: FLUOCINOLONE ACETONIDE
Strength: 0.2%
Dosage Form/Route: CREAM;TOPICAL
Application: N016161 | Product #002
Applicant: MEDIMETRIKS PHARMACEUTICALS INC
Approved: Approved Prior to Jan 1, 1982 | RLD: No | RS: No | Type: DISCN